FAERS Safety Report 24699149 (Version 1)
Quarter: 2024Q4

REPORT INFORMATION
  Report Type: Spontaneous
  Country: US (occurrence: US)
  Receive Date: 20241205
  Receipt Date: 20241205
  Transmission Date: 20250115
  Serious: No
  Sender: ROCHE
  Company Number: US-ROCHE-10000145319

PATIENT
  Age: 31 Year
  Sex: Female
  Weight: 136.07 kg

DRUGS (4)
  1. XOLAIR [Suspect]
     Active Substance: OMALIZUMAB
     Indication: Idiopathic urticaria
     Route: 058
  2. OZEMPIC [Concomitant]
     Active Substance: SEMAGLUTIDE
     Dosage: 1/0.75MG INJECTION PEN
  3. SLYND [Concomitant]
     Active Substance: DROSPIRENONE
     Indication: Contraception
  4. VITAMIN D2 [Concomitant]
     Active Substance: ERGOCALCIFEROL
     Dosage: STRENGTH: 300MG/2ML

REACTIONS (5)
  - Product administered at inappropriate site [Unknown]
  - Product dose omission issue [Unknown]
  - Accidental exposure to product [Unknown]
  - Product complaint [Unknown]
  - No adverse event [Unknown]

NARRATIVE: CASE EVENT DATE: 20241126
